FAERS Safety Report 8981488 (Version 1)
Quarter: 2012Q4

REPORT INFORMATION
  Report Type: 
  Country: IT (occurrence: IT)
  Receive Date: 20121221
  Receipt Date: 20121221
  Transmission Date: 20130627
  Serious: Yes (Other)
  Sender: FDA-Public Use
  Company Number: IT-SANOFI-AVENTIS-2012SA091287

PATIENT
  Age: 65 Year
  Sex: Male

DRUGS (6)
  1. OXALIPLATIN [Suspect]
     Indication: ADENOCARCINOMA OF COLON
     Route: 042
     Dates: start: 20120626, end: 20121026
  2. OXALIPLATIN [Suspect]
     Indication: ADENOCARCINOMA OF COLON
     Route: 042
     Dates: start: 20121026
  3. FLUOROURACIL [Suspect]
     Indication: ADENOCARCINOMA OF COLON
     Route: 042
     Dates: start: 20120626, end: 20121026
  4. FLUOROURACIL [Suspect]
     Indication: ADENOCARCINOMA OF COLON
     Route: 042
     Dates: start: 20121026
  5. CALCIUM LEVOFOLINATE [Concomitant]
     Indication: ADENOCARCINOMA OF COLON
     Dates: start: 20120626, end: 20120807
  6. CARDIOASPIRIN [Concomitant]
     Indication: HYPERTENSIVE CARDIOMYOPATHY
     Dates: start: 20120526, end: 20121114

REACTIONS (2)
  - Hyperbilirubinaemia [Recovering/Resolving]
  - Blood iron increased [Recovering/Resolving]
